FAERS Safety Report 21204339 (Version 2)
Quarter: 2022Q3

REPORT INFORMATION
  Report Type: Spontaneous
  Country: US (occurrence: US)
  Receive Date: 20220812
  Receipt Date: 20220816
  Transmission Date: 20221026
  Serious: Yes (Other)
  Sender: FDA-Public Use
  Company Number: US-SANOFI-01221760

PATIENT
  Sex: Female

DRUGS (2)
  1. NEXVIAZYME [Suspect]
     Active Substance: AVALGLUCOSIDASE ALFA-NGPT
     Dosage: 4MG/KG, QOW
     Dates: start: 202207
  2. BENADRYL [Concomitant]
     Active Substance: DIPHENHYDRAMINE HYDROCHLORIDE
     Indication: Premedication
     Dosage: 4 MG

REACTIONS (2)
  - Anaphylactic reaction [Unknown]
  - Pruritus [Unknown]

NARRATIVE: CASE EVENT DATE: 20220714
